FAERS Safety Report 18659283 (Version 2)
Quarter: 2022Q1

REPORT INFORMATION
  Report Type: Spontaneous
  Country: US (occurrence: US)
  Receive Date: 20201223
  Receipt Date: 20220104
  Transmission Date: 20220424
  Serious: Yes (Other)
  Sender: FDA-Public Use
  Company Number: US-COOPERSURGICAL, INC.-US-2020CPS002530

PATIENT
  Age: 27 Year
  Sex: Female
  Weight: 56.689 kg

DRUGS (3)
  1. PARAGARD T 380A [Suspect]
     Active Substance: COPPER
     Indication: Contraception
     Dosage: UNK
     Route: 015
     Dates: start: 20200925, end: 20200925
  2. PARAGARD T 380A [Suspect]
     Active Substance: COPPER
     Dosage: UNK
     Route: 015
     Dates: start: 20200925
  3. PRENATAL VITAMINS                  /02014401/ [Concomitant]
     Indication: Vitamin supplementation
     Dosage: UNK
     Route: 065

REACTIONS (4)
  - Uterine perforation [Recovered/Resolved]
  - Complication of device insertion [Recovered/Resolved]
  - Procedural pain [Unknown]
  - Off label use [Recovered/Resolved]

NARRATIVE: CASE EVENT DATE: 20200915
